FAERS Safety Report 25382470 (Version 1)
Quarter: 2025Q2

REPORT INFORMATION
  Report Type: Spontaneous
  Country: US (occurrence: US)
  Receive Date: 20250601
  Receipt Date: 20250601
  Transmission Date: 20250716
  Serious: No
  Sender: DAIICHI
  Company Number: US-DAIICHI SANKYO, INC.-DS-2025-143683-USAA

PATIENT
  Sex: Female

DRUGS (1)
  1. VANFLYTA [Suspect]
     Active Substance: QUIZARTINIB DIHYDROCHLORIDE
     Indication: Acute myeloid leukaemia
     Dosage: 17.7 MG, QD (ONCE DAILY ON DAYS 1-28 OF 28 DAYS CYCLE)
     Route: 048
     Dates: start: 20250307, end: 20250524

REACTIONS (1)
  - Stem cell transplant [Not Recovered/Not Resolved]
